FAERS Safety Report 25895925 (Version 1)
Quarter: 2025Q4

REPORT INFORMATION
  Report Type: Spontaneous
  Country: BA (occurrence: BA)
  Receive Date: 20251008
  Receipt Date: 20251008
  Transmission Date: 20260118
  Serious: Yes (Other)
  Sender: MERCK SHARP & DOHME LLC
  Company Number: BA-009507513-2335330

PATIENT
  Age: 38 Year
  Sex: Female

DRUGS (3)
  1. PEMBROLIZUMAB [Suspect]
     Active Substance: PEMBROLIZUMAB
     Indication: Breast cancer
     Dosage: PEMBROLIZUMAB 200MG IV Q3W X 8?PACLITAXEL 80MG/M2D1,8,15 + CARBOPLATIN AUC5 D1 Q3W X4 (G-CSF 5D N...
     Route: 042
     Dates: start: 2025
  2. CARBOPLATIN [Suspect]
     Active Substance: CARBOPLATIN
     Indication: Breast cancer
     Dosage: AUC5 D1 Q3W X4 (G-CSF 5D AFTER D1)
     Dates: start: 2025
  3. PACLITAXEL [Suspect]
     Active Substance: PACLITAXEL
     Indication: Breast cancer
     Dosage: TIME INTERVAL: CYCLICAL: D1,8,15
     Dates: start: 2025

REACTIONS (4)
  - Hypothyroidism [Unknown]
  - Rash [Unknown]
  - Mastectomy [Unknown]
  - Periorbital swelling [Unknown]

NARRATIVE: CASE EVENT DATE: 20250201
